FAERS Safety Report 6141666-8 (Version None)
Quarter: 2009Q1

REPORT INFORMATION
  Report Type: 
  Country: None (occurrence: None)
  Receive Date: 20090331
  Receipt Date: 20090331
  Transmission Date: 20090719
  Serious: No
  Sender: FDA-Public Use
  Company Number: None

PATIENT
  Sex: Female
  Weight: 61.2356 kg

DRUGS (3)
  1. LAMICTAL [Suspect]
     Indication: AFFECTIVE DISORDER
     Dosage: 12.5MGSDAILY 1X DAILY PO
     Route: 048
     Dates: start: 20080814, end: 20080819
  2. LAMICTAL [Suspect]
     Indication: ANTIDEPRESSANT THERAPY
     Dosage: 12.5MGSDAILY 1X DAILY PO
     Route: 048
     Dates: start: 20080814, end: 20080819
  3. LAMICTAL [Concomitant]

REACTIONS (11)
  - AFFECT LABILITY [None]
  - AGORAPHOBIA [None]
  - CRYING [None]
  - DEPRESSION [None]
  - DIZZINESS [None]
  - DRUG WITHDRAWAL SYNDROME [None]
  - FEELING ABNORMAL [None]
  - HYPERACUSIS [None]
  - IMPAIRED WORK ABILITY [None]
  - NAUSEA [None]
  - PHOTOPHOBIA [None]
